FAERS Safety Report 6669190-4 (Version None)
Quarter: 2010Q2

REPORT INFORMATION
  Report Type: 
  Country: None (occurrence: None)
  Receive Date: 20100406
  Receipt Date: 20100326
  Transmission Date: 20101027
  Serious: Yes (Disabling)
  Sender: FDA-Public Use
  Company Number: GB-JNJFOC-20100201329

PATIENT
  Age: 53 Year
  Sex: Female

DRUGS (9)
  1. DITROPAN [Suspect]
     Indication: BLADDER DISORDER
     Route: 048
  2. PARACETAMOL [Concomitant]
     Route: 065
  3. PARAFFIN [Concomitant]
     Route: 065
  4. ACETAMINOPHEN WITH PROPOXYPHENE HCL TAB [Concomitant]
     Route: 065
  5. DICLOFENAC SODIUM [Concomitant]
     Route: 065
  6. DICLOFENAC SODIUM [Concomitant]
     Route: 065
  7. ZOPICLONE [Concomitant]
     Route: 065
  8. FLOXACILLIN SODIUM [Concomitant]
     Route: 065
  9. E45 [Concomitant]

REACTIONS (9)
  - ANAL FISSURE [None]
  - ANAL HAEMORRHAGE [None]
  - ASTHENIA [None]
  - DIARRHOEA [None]
  - FEELING COLD [None]
  - GASTROINTESTINAL INJURY [None]
  - HUNGER [None]
  - MALAISE [None]
  - WEIGHT GAIN POOR [None]
